FAERS Safety Report 6918123-1 (Version None)
Quarter: 2010Q3

REPORT INFORMATION
  Report Type: 
  Country: None (occurrence: None)
  Receive Date: 20100806
  Receipt Date: 20100722
  Transmission Date: 20110219
  Serious: Yes (Other)
  Sender: FDA-Public Use
  Company Number: ACO_00797_2010

PATIENT
  Sex: Female
  Weight: 56.6996 kg

DRUGS (6)
  1. AMPYRA [Suspect]
     Indication: GAIT DISTURBANCE
     Dosage: ORAL
     Route: 048
     Dates: start: 20100423, end: 20100501
  2. AMPYRA [Suspect]
     Indication: GAIT DISTURBANCE
     Dosage: ORAL
     Route: 048
     Dates: start: 20100101
  3. PREDNISONE [Concomitant]
  4. BACLOFEN [Concomitant]
  5. REBIF [Concomitant]
  6. IRON [Concomitant]

REACTIONS (5)
  - BALANCE DISORDER [None]
  - DRUG INEFFECTIVE [None]
  - DYSSTASIA [None]
  - PARAESTHESIA [None]
  - SECONDARY PROGRESSIVE MULTIPLE SCLEROSIS [None]
